FAERS Safety Report 10529987 (Version 1)
Quarter: 2014Q4

REPORT INFORMATION
  Report Type: Spontaneous
  Country: IT (occurrence: IT)
  Receive Date: 20141021
  Receipt Date: 20141021
  Transmission Date: 20150528
  Serious: Yes (Hospitalization)
  Sender: FDA-Public Use
  Company Number: IT-ASTRAZENECA-2014SE78525

PATIENT
  Age: 28475 Day
  Sex: Male

DRUGS (3)
  1. SEROQUEL [Suspect]
     Active Substance: QUETIAPINE FUMARATE
     Route: 048
     Dates: start: 2012
  2. KEPPRA [Suspect]
     Active Substance: LEVETIRACETAM
     Route: 048
     Dates: start: 2012
  3. AZATHIOPRINE. [Suspect]
     Active Substance: AZATHIOPRINE
     Route: 048
     Dates: start: 20130105, end: 20130320

REACTIONS (1)
  - Pancytopenia [Recovering/Resolving]

NARRATIVE: CASE EVENT DATE: 20130320
